FAERS Safety Report 7546550-0 (Version None)
Quarter: 2011Q2

REPORT INFORMATION
  Report Type: 
  Country: None (occurrence: None)
  Receive Date: 20110614
  Receipt Date: 20110606
  Transmission Date: 20111010
  Serious: Yes (Hospitalization)
  Sender: FDA-Public Use
  Company Number: JP-B.I. PHARMACEUTICALS,INC./RIDGEFIELD-2011-BP-14828NB

PATIENT
  Age: 73 Year
  Sex: Male

DRUGS (9)
  1. ENALAPRIL MALEATE [Concomitant]
     Route: 065
  2. BISOPROLOL FUMARATE [Concomitant]
     Route: 065
  3. OMEPRAZOLE [Concomitant]
     Route: 065
  4. DILTIAZEM HCL [Concomitant]
     Route: 065
  5. CRESTOR [Concomitant]
     Route: 065
     Dates: end: 20110603
  6. PURGATIVES [Concomitant]
     Route: 065
  7. ASPIRIN [Concomitant]
     Route: 065
  8. PRADAXA [Suspect]
     Indication: ATRIAL FIBRILLATION
     Dosage: 220 MG
     Route: 048
     Dates: start: 20110423, end: 20110603
  9. ALLOPURINOL [Concomitant]
     Route: 065

REACTIONS (1)
  - INTERSTITIAL LUNG DISEASE [None]
